FAERS Safety Report 9345236 (Version 1)
Quarter: 2013Q2

REPORT INFORMATION
  Report Type: Spontaneous
  Country: US (occurrence: US)
  Receive Date: 20130612
  Receipt Date: 20130612
  Transmission Date: 20140414
  Serious: Yes (Other)
  Sender: FDA-Public Use
  Company Number: US-MYLANLABS-2013S1012231

PATIENT
  Sex: 0

DRUGS (2)
  1. LANSOPRAZOLE DELAYED-RELEASE CAPSULES, USP [Suspect]
     Indication: DYSPEPSIA
  2. LANSOPRAZOLE DELAYED-RELEASE CAPSULES, USP [Suspect]
     Indication: DYSPEPSIA

REACTIONS (7)
  - Drug effect decreased [Not Recovered/Not Resolved]
  - Dyspepsia [Not Recovered/Not Resolved]
  - Skin haemorrhage [Recovered/Resolved]
  - Contusion [Recovered/Resolved]
  - Skin discolouration [Not Recovered/Not Resolved]
  - Oedema peripheral [Not Recovered/Not Resolved]
  - Arthralgia [Recovering/Resolving]
